FAERS Safety Report 8533612-4 (Version None)
Quarter: 2012Q3

REPORT INFORMATION
  Report Type: 
  Country: None (occurrence: None)
  Receive Date: 20120712
  Receipt Date: 20120702
  Transmission Date: 20120928
  Serious: Yes (Hospitalization)
  Sender: FDA-Public Use
  Company Number: AXC-2012-000288

PATIENT
  Age: 85 Year
  Sex: Male

DRUGS (3)
  1. CLOBETASOL PROPIONATE [Concomitant]
  2. URSODIOL [Suspect]
     Indication: HEPATIC FUNCTION ABNORMAL
     Dosage: UNK, ORAL
     Route: 048
     Dates: end: 20120616
  3. ALLEGRA [Concomitant]

REACTIONS (2)
  - DERMATITIS EXFOLIATIVE [None]
  - RASH [None]
